FAERS Safety Report 9490532 (Version 1)
Quarter: 2013Q3

REPORT INFORMATION
  Report Type: Spontaneous
  Country: US (occurrence: None)
  Receive Date: 20130827
  Receipt Date: 20130827
  Transmission Date: 20140515
  Serious: Yes (Disabling)
  Sender: FDA-Public Use
  Company Number: None

PATIENT
  Sex: Male

DRUGS (10)
  1. DICLOFENAC SODIUM ER [Suspect]
     Indication: PRODUCT USED FOR UNKNOWN INDICATION
     Route: 048
  2. PULMICORT [Concomitant]
  3. ZYRTEC [Concomitant]
  4. KLONOPIN [Concomitant]
  5. PROZAC [Concomitant]
  6. LASIX [Concomitant]
  7. TRAZODONE [Concomitant]
  8. TYLENOL [Concomitant]
  9. SALINE NASAL SPARY [Concomitant]
  10. ALBUTEROL [Concomitant]

REACTIONS (9)
  - Headache [None]
  - Nausea [None]
  - Dizziness [None]
  - Asthenia [None]
  - Decreased appetite [None]
  - Local swelling [None]
  - Joint swelling [None]
  - Local swelling [None]
  - Back pain [None]
